FAERS Safety Report 14943441 (Version 1)
Quarter: 2018Q2

REPORT INFORMATION
  Report Type: Spontaneous
  Country: US (occurrence: US)
  Receive Date: 20180528
  Receipt Date: 20180528
  Transmission Date: 20180711
  Serious: No
  Sender: FDA-Public Use
  Company Number: US-BRISTOL-MYERS SQUIBB COMPANY-BMS-2018-049033

PATIENT
  Age: 87 Year
  Sex: Male

DRUGS (4)
  1. MEGACE [Suspect]
     Active Substance: MEGESTROL ACETATE
     Indication: PRODUCT USED FOR UNKNOWN INDICATION
     Route: 065
  2. NORTHERA [Suspect]
     Active Substance: DROXIDOPA
     Indication: ORTHOSTATIC HYPOTENSION
     Route: 065
  3. NORTHERA [Suspect]
     Active Substance: DROXIDOPA
     Indication: AUTONOMIC NEUROPATHY
     Dosage: 200 MG, TID
     Route: 065
     Dates: start: 20180510
  4. NORTHERA [Suspect]
     Active Substance: DROXIDOPA
     Indication: DIZZINESS
     Route: 065

REACTIONS (6)
  - Asthenia [Unknown]
  - Oedema [Unknown]
  - Hypersomnia [Unknown]
  - Dysphagia [Unknown]
  - General physical health deterioration [Unknown]
  - Bedridden [Unknown]

NARRATIVE: CASE EVENT DATE: 20180510
